FAERS Safety Report 4634783-2 (Version None)
Quarter: 2005Q2

REPORT INFORMATION
  Report Type: 
  Country: None (occurrence: None)
  Receive Date: 20050412
  Receipt Date: 20050412
  Transmission Date: 20051028
  Serious: No
  Sender: FDA-Public Use
  Company Number: None

PATIENT
  Sex: Female
  Weight: 63.05 kg

DRUGS (4)
  1. OXALIPLATIN [Suspect]
     Indication: COLON CANCER
     Dosage: 40 MG X 1 ON DAY 1 INTRAVENOUS
     Route: 042
     Dates: start: 20050330, end: 20050330
  2. DEXAMETHASONE [Concomitant]
  3. LORAZEPAM [Concomitant]
  4. GRANISETRON [Concomitant]

REACTIONS (2)
  - INFUSION RELATED REACTION [None]
  - RASH [None]
